FAERS Safety Report 13635809 (Version 1)
Quarter: 2017Q2

REPORT INFORMATION
  Report Type: Spontaneous
  Country: US (occurrence: US)
  Receive Date: 20170531
  Receipt Date: 20170531
  Transmission Date: 20170830
  Serious: No
  Sender: FDA-Public Use
  Company Number: US-ASTELLAS-1743796

PATIENT
  Age: 48 Year
  Sex: Female

DRUGS (3)
  1. LISINOPRIL. [Concomitant]
     Active Substance: LISINOPRIL
  2. HYDROCHLOROTHIAZIDE. [Concomitant]
     Active Substance: HYDROCHLOROTHIAZIDE
  3. TARCEVA [Suspect]
     Active Substance: ERLOTINIB HYDROCHLORIDE
     Indication: LUNG NEOPLASM MALIGNANT
     Dosage: ON AN EMPTY STOMACH, 1 HOUR BEFORE OR 2 HOURS AFTER A MEAL
     Route: 048

REACTIONS (2)
  - Skin exfoliation [Unknown]
  - Acne [Unknown]
